FAERS Safety Report 22657093 (Version 3)
Quarter: 2025Q3

REPORT INFORMATION
  Report Type: Spontaneous
  Country: CO (occurrence: CO)
  Receive Date: 20230630
  Receipt Date: 20250912
  Transmission Date: 20251021
  Serious: Yes (Hospitalization, Other)
  Sender: CHEPLAPHARM
  Company Number: CO-ROCHE-2929287

PATIENT
  Age: 54 Year
  Sex: Female

DRUGS (15)
  1. CAPECITABINE [Suspect]
     Active Substance: CAPECITABINE
     Indication: Breast cancer
     Route: 048
  2. PACLITAXEL [Suspect]
     Active Substance: PACLITAXEL
     Dosage: CUMULATIVE DOSE: 1072 MG
     Route: 042
     Dates: start: 20200925, end: 20201201
  3. ATEZOLIZUMAB [Suspect]
     Active Substance: ATEZOLIZUMAB
     Route: 042
  4. TRASTUZUMAB [Suspect]
     Active Substance: TRASTUZUMAB
     Dosage: CUMULATIVE DOSE: 4608MG?ONCE IN 3 WEEKS
     Route: 042
     Dates: start: 20200925, end: 20201124
  5. TRASTUZUMAB [Suspect]
     Active Substance: TRASTUZUMAB
     Dosage: CUMULATIVE DOSE: 2176 MG?ONCE IN 3 WEEKS
     Route: 042
     Dates: start: 20210525
  6. AVASTIN [Suspect]
     Active Substance: BEVACIZUMAB
     Route: 042
  7. ADO-TRASTUZUMAB EMTANSINE [Suspect]
     Active Substance: ADO-TRASTUZUMAB EMTANSINE
     Dosage: NUMBER OF CYCLES PER REGIMEN: 1, THERAPY COMPLETED?ONCE IN 3 WEEKS
     Route: 042
     Dates: start: 20200925, end: 20201009
  8. PERJETA [Suspect]
     Active Substance: PERTUZUMAB
     Route: 042
  9. DOXORUBICIN [Suspect]
     Active Substance: DOXORUBICIN
     Dosage: ONCE IN 4 WEEKS?CUMULATIVE DOSE: 300 MG
     Route: 042
     Dates: start: 20200527, end: 20200811
  10. CYCLOPHOSPHAMIDE [Suspect]
     Active Substance: CYCLOPHOSPHAMIDE
     Dosage: ONCE IN 4 WEEKS ?CUMULATIVE DOSE: 3GMS
     Route: 042
     Dates: start: 20200527, end: 20200811
  11. Dapagli Fozin [Concomitant]
     Route: 048
     Dates: start: 20211126, end: 20240429
  12. LINAGLIPTIN [Concomitant]
     Active Substance: LINAGLIPTIN
     Route: 048
     Dates: start: 202106
  13. METFORMIN [Concomitant]
     Active Substance: METFORMIN HYDROCHLORIDE
     Route: 048
     Dates: start: 202106
  14. SACUBITRIL\VALSARTAN [Concomitant]
     Active Substance: SACUBITRIL\VALSARTAN
     Route: 048
     Dates: start: 202208
  15. SEMAGLUTIDE [Concomitant]
     Active Substance: SEMAGLUTIDE
     Route: 048
     Dates: start: 20240609

REACTIONS (6)
  - Cardiac disorder [Recovered/Resolved]
  - Diverticulum [Not Recovered/Not Resolved]
  - Chest pain [Recovered/Resolved]
  - Arteriosclerosis [Not Recovered/Not Resolved]
  - Nephrolithiasis [Not Recovered/Not Resolved]
  - Hypertension [Not Recovered/Not Resolved]

NARRATIVE: CASE EVENT DATE: 20201112
